FAERS Safety Report 10040711 (Version 2)
Quarter: 2014Q2

REPORT INFORMATION
  Report Type: Report from Study
  Country: US (occurrence: US)
  Receive Date: 20140327
  Receipt Date: 20140510
  Transmission Date: 20141212
  Serious: Yes (Hospitalization)
  Sender: FDA-Public Use
  Company Number: US-JNJFOC-20140306569

PATIENT
  Age: 64 Year
  Sex: Male
  Weight: 64.9 kg

DRUGS (4)
  1. ACETAMINOPHEN [Suspect]
     Route: 048
  2. ACETAMINOPHEN [Suspect]
     Indication: PAIN
     Dosage: EVERY 3-4 HOURS
     Route: 048
  3. OXYCODONE [Suspect]
     Indication: PAIN
     Route: 048
  4. ALCOHOL [Concomitant]
     Indication: PAIN
     Route: 065

REACTIONS (5)
  - Alcohol interaction [Recovered/Resolved]
  - Overdose [Recovered/Resolved]
  - Abdominal pain [Recovered/Resolved]
  - Vomiting [Recovered/Resolved]
  - Hepatic enzyme increased [Recovered/Resolved]
